FAERS Safety Report 7575561-4 (Version None)
Quarter: 2011Q2

REPORT INFORMATION
  Report Type: 
  Country: None (occurrence: None)
  Receive Date: 20110627
  Receipt Date: 20110617
  Transmission Date: 20111010
  Serious: Yes (Hospitalization)
  Sender: FDA-Public Use
  Company Number: US-AMGEN-USASP2011026280

PATIENT
  Age: 72 Year
  Sex: Female

DRUGS (1)
  1. ENBREL [Suspect]
     Indication: RHEUMATOID ARTHRITIS
     Dosage: 50 MG, QWK
     Dates: start: 20110415

REACTIONS (9)
  - ORAL CANDIDIASIS [None]
  - ORAL PAIN [None]
  - OESOPHAGITIS [None]
  - DIARRHOEA [None]
  - DYSGEUSIA [None]
  - INTESTINAL OBSTRUCTION [None]
  - VOMITING [None]
  - NAUSEA [None]
  - TONGUE DISORDER [None]
